FAERS Safety Report 11863031 (Version 5)
Quarter: 2016Q2

REPORT INFORMATION
  Report Type: Report from Study
  Country: BR (occurrence: BR)
  Receive Date: 20151223
  Receipt Date: 20160420
  Transmission Date: 20160815
  Serious: Yes (Death, Hospitalization, Other)
  Sender: FDA-Public Use
  Company Number: BR-ROCHE-1682519

PATIENT
  Sex: Male
  Weight: 70 kg

DRUGS (1)
  1. AVASTIN [Suspect]
     Active Substance: BEVACIZUMAB
     Indication: COLORECTAL CANCER
     Dosage: LAST CHEMOTHERAPY: 12/MAR/2016.
     Route: 065
     Dates: start: 20150909

REACTIONS (18)
  - Bedridden [Recovering/Resolving]
  - Malaise [Unknown]
  - Drug ineffective [Unknown]
  - Depressed mood [Recovering/Resolving]
  - Dyspnoea [Unknown]
  - Constipation [Unknown]
  - Asthenia [Recovering/Resolving]
  - Weight decreased [Unknown]
  - Neoplasm malignant [Fatal]
  - Swelling [Not Recovered/Not Resolved]
  - Decreased appetite [Unknown]
  - Cholangitis [Unknown]
  - Decreased appetite [Not Recovered/Not Resolved]
  - Fear of eating [Unknown]
  - Asthenia [Not Recovered/Not Resolved]
  - Disease progression [Unknown]
  - Nervousness [Recovering/Resolving]
  - Fatigue [Recovering/Resolving]
